FAERS Safety Report 7779596-8 (Version None)
Quarter: 2011Q3

REPORT INFORMATION
  Report Type: 
  Country: None (occurrence: None)
  Receive Date: 20110927
  Receipt Date: 20110902
  Transmission Date: 20111222
  Serious: No
  Sender: FDA-Public Use
  Company Number: US-BAYER-2011-082076

PATIENT
  Sex: Female

DRUGS (1)
  1. CLIMARA [Suspect]
     Indication: MENOPAUSAL SYMPTOMS
     Dosage: 0.05 MG/24HR, UNK
     Route: 062
     Dates: start: 20110715

REACTIONS (3)
  - HOT FLUSH [None]
  - MOOD SWINGS [None]
  - HEADACHE [None]
